FAERS Safety Report 4331489-4 (Version None)
Quarter: 2004Q1

REPORT INFORMATION
  Report Type: 
  Country: None (occurrence: None)
  Receive Date: 20040331
  Receipt Date: 20040315
  Transmission Date: 20041129
  Serious: Yes (Death)
  Sender: FDA-Public Use
  Company Number: 2004-DE-01256GD

PATIENT

DRUGS (3)
  1. METHOTREXATE [Suspect]
     Indication: OSTEOSARCOMA METASTATIC
     Dosage: SEE TEXT (NR), IV
     Route: 042
  2. ONDANSETRON HCL [Concomitant]
  3. DEXAMETHASONE [Concomitant]

REACTIONS (1)
  - BONE MARROW DEPRESSION [None]
